FAERS Safety Report 8983190 (Version 1)
Quarter: 2012Q4

REPORT INFORMATION
  Report Type: 
  Country: BR (occurrence: BR)
  Receive Date: 20121224
  Receipt Date: 20121224
  Transmission Date: 20130627
  Serious: Yes (Life-Threatening, Hospitalization, Other)
  Sender: FDA-Public Use
  Company Number: PHHY2012BR117942

PATIENT
  Sex: Male
  Weight: 94 kg

DRUGS (4)
  1. SANDOSTATIN LAR [Suspect]
     Indication: ACROMEGALY
     Dosage: 30 mg, UNK
     Dates: start: 201106
  2. CABERGOLINE [Concomitant]
  3. METFORMIN [Concomitant]
     Dates: start: 201106
  4. CAPTOPRIL [Concomitant]
     Dates: start: 201106

REACTIONS (4)
  - Diabetes mellitus [Recovered/Resolved]
  - Intervertebral disc protrusion [Unknown]
  - Hypertension [Unknown]
  - Malaise [Unknown]
